FAERS Safety Report 8192509-2 (Version None)
Quarter: 2012Q1

REPORT INFORMATION
  Report Type: 
  Country: None (occurrence: None)
  Receive Date: 20120308
  Receipt Date: 20120301
  Transmission Date: 20120608
  Serious: No
  Sender: FDA-Public Use
  Company Number: US-BIOGENIDEC-2012BI007921

PATIENT
  Age: 30 Year
  Sex: Female

DRUGS (1)
  1. TYSABRI [Suspect]
     Indication: MULTIPLE SCLEROSIS
     Route: 042
     Dates: start: 20120208

REACTIONS (8)
  - WHITE BLOOD CELLS URINE POSITIVE [None]
  - RED BLOOD CELLS URINE POSITIVE [None]
  - PROTEIN URINE PRESENT [None]
  - FALL [None]
  - URINE ODOUR ABNORMAL [None]
  - URINARY TRACT INFECTION [None]
  - CHROMATURIA [None]
  - DYSURIA [None]
